FAERS Safety Report 9251427 (Version 1)
Quarter: 2013Q1

REPORT INFORMATION
  Report Type: Spontaneous
  Country: US (occurrence: None)
  Receive Date: 20130305
  Receipt Date: 20130305
  Transmission Date: 20140127
  Serious: Yes (Hospitalization, Other)
  Sender: FDA-Public Use
  Company Number: 163-21880-12060227 (0)

PATIENT
  Age: 48 Year
  Sex: Male
  Weight: 97.52 kg

DRUGS (21)
  1. REVLIMID [Suspect]
     Indication: PLASMA CELL MYELOMA
     Dosage: 25 MG, 21 IN 21 D, PO
     Route: 048
     Dates: start: 20120511
  2. ACYCLOVIR (ACICLOVIR) [Concomitant]
  3. DEXAMETHASONE (DEXAMETHASONE) [Concomitant]
  4. VELCADE (BORTEZOMIB) [Concomitant]
  5. ASA (ACETYLSALICYLIC ACID) [Concomitant]
  6. MORPHINE [Concomitant]
  7. NUVIGIL (ARMODAFINIL) [Concomitant]
  8. CYCLOBENZAPRINE (CYCLOBENZAPRINE) [Concomitant]
  9. FAMOTIDINE (FAMOTIDINE) [Concomitant]
  10. ZOMETA (ZOLEDRONIC ACID) [Concomitant]
  11. ACETAMINOPHEN (PARACETAMOL) [Concomitant]
  12. VITAMIN D (ERGOCALCIFEROL) [Concomitant]
  13. ONDANSETRON (ONDANSETRON) [Concomitant]
  14. ROSUVASTATIN CALCIUM (ROSUVASTATIN CALCIUM) [Concomitant]
  15. SENOKOT (SENNA FRUIT) [Concomitant]
  16. SYMBICORT (SYMBICORT TURBUHALER ^DRACO^) [Concomitant]
  17. CALCIUM CARBONATE (CALCIUM CARBONATE) [Concomitant]
  18. DICLOFENAC SODIUM (DICLOFENAC SODIUM) [Concomitant]
  19. HYDROCODONE/ACETAMINOPHEN (REMEDEINE) [Concomitant]
  20. PROCHLORPERAZINE (PROCHLORPERAZINE) [Concomitant]
  21. NEURONTIN (GABAPENTIN) [Concomitant]

REACTIONS (3)
  - Influenza [None]
  - Neutropenia [None]
  - Pneumonia [None]
